FAERS Safety Report 12497790 (Version 3)
Quarter: 2016Q3

REPORT INFORMATION
  Report Type: Spontaneous
  Country: US (occurrence: US)
  Receive Date: 20160625
  Receipt Date: 20160824
  Transmission Date: 20161109
  Serious: Yes (Other)
  Sender: FDA-Public Use
  Company Number: US-SA-2016SA115921

PATIENT
  Age: 78 Year
  Sex: Male
  Weight: 83.91 kg

DRUGS (1)
  1. LOVENOX [Suspect]
     Active Substance: ENOXAPARIN SODIUM
     Indication: PROPHYLAXIS
     Dosage: STARTED LOVENOX 100 MG ON MON 6/13/16 AND LAST DOSE WAS THIS AM.
     Route: 065
     Dates: start: 20160613, end: 20160616

REACTIONS (1)
  - Atrioventricular block [Recovered/Resolved]
